FAERS Safety Report 10023979 (Version 1)
Quarter: 2014Q1

REPORT INFORMATION
  Report Type: Spontaneous
  Country: US (occurrence: None)
  Receive Date: 20140304
  Receipt Date: 20140304
  Transmission Date: 20141002
  Serious: Yes (Other)
  Sender: FDA-Public Use
  Company Number: RB-60403-2013

PATIENT
  Sex: Male

DRUGS (4)
  1. SUBOXONE [Suspect]
     Indication: PRODUCT USED FOR UNKNOWN INDICATION
     Dosage: DOSING INFORMATION UNKNOWN SUBLINGUAL
     Route: 060
     Dates: start: 2005
  2. SUBOXONE [Suspect]
     Indication: PRODUCT USED FOR UNKNOWN INDICATION
     Dosage: SUBLINGUAL FILM; UNKNOWN DOSING DETAILS. SUBLINGUAL
     Route: 060
  3. LIPITOR [Suspect]
     Indication: PRODUCT USED FOR UNKNOWN INDICATION
     Dosage: UNKNOWN DOSING DETAILS. ( UNKNOWN)
  4. ALCOHOL (ETHANOL) [Suspect]
     Indication: PRODUCT USED FOR UNKNOWN INDICATION
     Dosage: UNKNOWN DOSING DETAILS. ORAL
     Route: 048

REACTIONS (1)
  - Hepatic enzyme increased [None]
